FAERS Safety Report 14155467 (Version 2)
Quarter: 2018Q1

REPORT INFORMATION
  Report Type: Spontaneous
  Country: US (occurrence: US)
  Receive Date: 20171103
  Receipt Date: 20180315
  Transmission Date: 20180508
  Serious: Yes (Other)
  Sender: FDA-Public Use
  Company Number: US-ENDO PHARMACEUTICALS INC-2017-004884

PATIENT
  Age: 57 Year
  Sex: Male
  Weight: 95.24 kg

DRUGS (4)
  1. NAPROXEN. [Concomitant]
     Active Substance: NAPROXEN
     Indication: PRODUCT USED FOR UNKNOWN INDICATION
     Dosage: UNK UNKNOWN, UNKNOWN
     Route: 065
  2. XIAFLEX [Suspect]
     Active Substance: COLLAGENASE CLOSTRIDIUM HISTOLYTICUM
     Dosage: 0.58 MG, FIRST CYCLE, SINGLE
     Route: 026
     Dates: start: 20170717
  3. XIAFLEX [Suspect]
     Active Substance: COLLAGENASE CLOSTRIDIUM HISTOLYTICUM
     Indication: PEYRONIE^S DISEASE
     Dosage: 0.58 MG, SECOND CYCLE, SECOND INJECTION, WEEKLY
     Route: 026
     Dates: start: 20171106
  4. LISINOPRIL TABLETS [Concomitant]
     Active Substance: LISINOPRIL
     Indication: PRODUCT USED FOR UNKNOWN INDICATION
     Dosage: UNK UNKNOWN, UNKNOWN
     Route: 065

REACTIONS (7)
  - Penile swelling [Recovered/Resolved]
  - Injection site vesicles [Recovered/Resolved]
  - Skin discolouration [Recovered/Resolved]
  - Penile pain [Recovered/Resolved]
  - Hypersensitivity [Recovered/Resolved]
  - Angioedema [Recovered/Resolved]
  - Penile haemorrhage [Recovered/Resolved]

NARRATIVE: CASE EVENT DATE: 20170731
